FAERS Safety Report 16863569 (Version 2)
Quarter: 2025Q4

REPORT INFORMATION
  Report Type: Spontaneous
  Country: EU (occurrence: EU)
  Receive Date: 20190927
  Receipt Date: 20251029
  Transmission Date: 20260117
  Serious: Yes (Congenital Anomaly, Other)
  Sender: MYLAN
  Company Number: EU-SA-2018SA248329

PATIENT
  Sex: Female
  Weight: 3.45 kg

DRUGS (16)
  1. PREGABALIN [Suspect]
     Active Substance: PREGABALIN
     Indication: Mixed anxiety and depressive disorder
     Dosage: 3000 MILLIGRAM, QD, FROM FIVE MONTHS
  2. PREGABALIN [Suspect]
     Active Substance: PREGABALIN
     Dosage: 3000 MILLIGRAM, QD, FROM FIVE MONTHS
  3. PREGABALIN [Suspect]
     Active Substance: PREGABALIN
     Dosage: 3000 MILLIGRAM, QD, FROM FIVE MONTHS
     Route: 064
  4. PREGABALIN [Suspect]
     Active Substance: PREGABALIN
     Dosage: 3000 MILLIGRAM, QD, FROM FIVE MONTHS
     Route: 064
  5. PREGABALIN [Suspect]
     Active Substance: PREGABALIN
     Dosage: 3000 MILLIGRAM, QD, FROM FIVE MONTHS
  6. PREGABALIN [Suspect]
     Active Substance: PREGABALIN
     Dosage: 3000 MILLIGRAM, QD, FROM FIVE MONTHS
  7. PREGABALIN [Suspect]
     Active Substance: PREGABALIN
     Dosage: 3000 MILLIGRAM, QD, FROM FIVE MONTHS
     Route: 064
  8. PREGABALIN [Suspect]
     Active Substance: PREGABALIN
     Dosage: 3000 MILLIGRAM, QD, FROM FIVE MONTHS
     Route: 064
  9. TRAMADOL [Suspect]
     Active Substance: TRAMADOL
     Indication: Product used for unknown indication
     Dosage: 750 MILLIGRAM, QD
  10. TRAMADOL [Suspect]
     Active Substance: TRAMADOL
     Dosage: 750 MILLIGRAM, QD
  11. TRAMADOL [Suspect]
     Active Substance: TRAMADOL
     Dosage: 750 MILLIGRAM, QD
     Route: 064
  12. TRAMADOL [Suspect]
     Active Substance: TRAMADOL
     Dosage: 750 MILLIGRAM, QD
     Route: 064
  13. TRAMADOL [Suspect]
     Active Substance: TRAMADOL
     Dosage: 750 MILLIGRAM, QD
  14. TRAMADOL [Suspect]
     Active Substance: TRAMADOL
     Dosage: 750 MILLIGRAM, QD
  15. TRAMADOL [Suspect]
     Active Substance: TRAMADOL
     Dosage: 750 MILLIGRAM, QD
     Route: 064
  16. TRAMADOL [Suspect]
     Active Substance: TRAMADOL
     Dosage: 750 MILLIGRAM, QD
     Route: 064

REACTIONS (6)
  - Congenital pneumonia [Unknown]
  - Umbilical cord abnormality [Unknown]
  - Meconium in amniotic fluid [Unknown]
  - Premature baby [Unknown]
  - Foetal exposure during pregnancy [Unknown]
  - Lung consolidation [Unknown]
